FAERS Safety Report 11873826 (Version 5)
Quarter: 2016Q2

REPORT INFORMATION
  Report Type: Spontaneous
  Country: FR (occurrence: FR)
  Receive Date: 20151229
  Receipt Date: 20160505
  Transmission Date: 20160815
  Serious: Yes (Hospitalization, Other)
  Sender: FDA-Public Use
  Company Number: FR-MYLANLABS-2015M1046932

PATIENT

DRUGS (9)
  1. POTASSIUM BICARBONATE. [Concomitant]
     Active Substance: POTASSIUM BICARBONATE
     Dosage: 1.5 G, QID
     Dates: start: 20140922
  2. IMPORTAL [Concomitant]
     Active Substance: LACTITOL
     Dosage: UNK
  3. CYSTAGON [Suspect]
     Active Substance: CYSTEAMINE BITARTRATE
     Indication: CYSTINOSIS
     Dosage: 700 MG, QD
     Route: 048
     Dates: start: 20140701, end: 20160216
  4. INDOCID                            /00003801/ [Suspect]
     Active Substance: INDOMETHACIN
     Indication: CYSTINOSIS
     Dosage: 17.5 MG, BID
     Dates: start: 20140701, end: 20160216
  5. CYSTAGON [Suspect]
     Active Substance: CYSTEAMINE BITARTRATE
     Dosage: UNK
     Route: 048
  6. CYSTEAMINE HYDROCHLORIDE [Concomitant]
     Active Substance: CYSTEAMINE HYDROCHLORIDE
     Dosage: UNK
     Dates: start: 20150110
  7. PHOSPHONEUROS [Concomitant]
     Active Substance: CALCIUM PHOSPHATE, DIBASIC, ANHYDROUS\MAGNESIUM GLYCEROPHOSPHATE\PHOSPHORIC ACID\SODIUM PHOSPHATE, DIBASIC
     Dosage: 10 GTT, TID
  8. CYSTAGON [Suspect]
     Active Substance: CYSTEAMINE BITARTRATE
     Dosage: 175 MG, QID
     Dates: start: 20150921, end: 201602
  9. FERROSTRANE [Concomitant]
     Active Substance: SODIUM FEREDETATE
     Dosage: UNK

REACTIONS (5)
  - Constipation [Recovering/Resolving]
  - Gastroduodenal ulcer [Recovering/Resolving]
  - Subileus [Recovered/Resolved with Sequelae]
  - Haematemesis [Recovered/Resolved]
  - Gastrointestinal haemorrhage [None]

NARRATIVE: CASE EVENT DATE: 20150928
